FAERS Safety Report 17124558 (Version 1)
Quarter: 2019Q4

REPORT INFORMATION
  Report Type: Spontaneous
  Country: BR (occurrence: BR)
  Receive Date: 20191206
  Receipt Date: 20191206
  Transmission Date: 20200122
  Serious: Yes (Other)
  Sender: FDA-Public Use
  Company Number: BR-009507513-1912BRA000326

PATIENT
  Sex: Male

DRUGS (1)
  1. TEMODAL [Suspect]
     Active Substance: TEMOZOLOMIDE
     Dosage: 1 TABLET A DAY FOR 5 DAYS AND STOPPING 28 DAYS
     Route: 048

REACTIONS (4)
  - Nausea [Not Recovered/Not Resolved]
  - Foot amputation [Unknown]
  - Foot operation [Unknown]
  - Dizziness [Not Recovered/Not Resolved]

NARRATIVE: CASE EVENT DATE: 2006
